FAERS Safety Report 8486725-X (Version None)
Quarter: 2012Q3

REPORT INFORMATION
  Report Type: 
  Country: None (occurrence: None)
  Receive Date: 20120704
  Receipt Date: 20120628
  Transmission Date: 20120928
  Serious: Yes (Hospitalization, Other)
  Sender: FDA-Public Use
  Company Number: US-BIOGENIDEC-2011BI042787

PATIENT
  Age: 60 Year
  Sex: Male

DRUGS (8)
  1. GABAPENTIN [Concomitant]
  2. OXYBUTYNIN [Concomitant]
  3. ZINC SULFATE [Concomitant]
  4. FLOMAX [Concomitant]
  5. VIAGRA [Concomitant]
  6. MULTI-VITAMINS [Concomitant]
  7. TYSABRI [Suspect]
     Indication: MULTIPLE SCLEROSIS
     Route: 042
     Dates: start: 20080416, end: 20111013
  8. CRESTOR [Concomitant]

REACTIONS (1)
  - PROGRESSIVE MULTIFOCAL LEUKOENCEPHALOPATHY [None]
